FAERS Safety Report 7585794-9 (Version None)
Quarter: 2011Q3

REPORT INFORMATION
  Report Type: 
  Country: None (occurrence: None)
  Receive Date: 20110701
  Receipt Date: 20110629
  Transmission Date: 20111222
  Serious: Yes (Other)
  Sender: FDA-Public Use
  Company Number: FR-BRISTOL-MYERS SQUIBB COMPANY-15865256

PATIENT
  Age: 22 Year
  Sex: Female

DRUGS (2)
  1. ABILIFY [Suspect]
     Route: 048
  2. TERCIAN [Suspect]
     Route: 048

REACTIONS (5)
  - SUICIDE ATTEMPT [None]
  - OVERDOSE [None]
  - HEART RATE INCREASED [None]
  - HYPOAESTHESIA [None]
  - DISTURBANCE IN ATTENTION [None]
